FAERS Safety Report 18305648 (Version 1)
Quarter: 2020Q3

REPORT INFORMATION
  Report Type: Spontaneous
  Country: CA (occurrence: CA)
  Receive Date: 20200923
  Receipt Date: 20200923
  Transmission Date: 20201103
  Serious: Yes (Hospitalization)
  Sender: FDA-Public Use
  Company Number: CA-FRESENIUS KABI-FK202009797

PATIENT
  Age: 33 Year
  Sex: Female

DRUGS (1)
  1. MORPHINE SULFATE INJECTION (MANUFACTURER UNKNOWN) [Suspect]
     Active Substance: MORPHINE SULFATE
     Indication: LABOUR PAIN
     Route: 065

REACTIONS (1)
  - Asthma [Recovered/Resolved]
